FAERS Safety Report 8854854 (Version 1)
Quarter: 2012Q4

REPORT INFORMATION
  Report Type: 
  Country: US (occurrence: US)
  Receive Date: 20121023
  Receipt Date: 20121023
  Transmission Date: 20130627
  Serious: No
  Sender: FDA-Public Use
  Company Number: US-PFIZER INC-2012262188

PATIENT
  Age: 93 Year
  Sex: Female

DRUGS (2)
  1. GABAPENTIN [Suspect]
     Dosage: 600 mg, 2x/day
  2. GABAPENTIN [Suspect]
     Dosage: 300 mg, 2x/day

REACTIONS (3)
  - Somnolence [Unknown]
  - Pain in extremity [Unknown]
  - Paraesthesia [Unknown]
